FAERS Safety Report 19061840 (Version 1)
Quarter: 2021Q1

REPORT INFORMATION
  Report Type: Spontaneous
  Country: US (occurrence: US)
  Receive Date: 20210325
  Receipt Date: 20210325
  Transmission Date: 20210420
  Serious: Yes (Other)
  Sender: FDA-Public Use
  Company Number: None

PATIENT
  Age: 65 Year
  Sex: Female
  Weight: 85.5 kg

DRUGS (13)
  1. MULTIVITAMIN [Concomitant]
     Active Substance: VITAMINS
  2. CALCIUM [Concomitant]
     Active Substance: CALCIUM
  3. PRAVASTATIN. [Concomitant]
     Active Substance: PRAVASTATIN
  4. VITAMIN C [Concomitant]
     Active Substance: ASCORBIC ACID
  5. TRULICITY [Suspect]
     Active Substance: DULAGLUTIDE
     Indication: DIABETES MELLITUS
     Dosage: ?          QUANTITY:1 INJECTION(S);OTHER FREQUENCY:WEEK;?
     Route: 030
     Dates: start: 20180801, end: 20180919
  6. LOSARTIN [Concomitant]
     Active Substance: LOSARTAN
  7. METOPROLOL. [Concomitant]
     Active Substance: METOPROLOL
  8. BIOTIN [Concomitant]
     Active Substance: BIOTIN
  9. METFORMIN [Concomitant]
     Active Substance: METFORMIN HYDROCHLORIDE
  10. BUPROPRION [Concomitant]
     Active Substance: BUPROPION
  11. GLYBURIDE. [Concomitant]
     Active Substance: GLYBURIDE
  12. TRAMTERINE [Concomitant]
  13. LOW DOSE ASPIRIN [Concomitant]
     Active Substance: ASPIRIN

REACTIONS (4)
  - Vomiting [None]
  - Therapy cessation [None]
  - Abdominal discomfort [None]
  - Weight decreased [None]

NARRATIVE: CASE EVENT DATE: 20180801
